FAERS Safety Report 14569429 (Version 3)
Quarter: 2024Q3

REPORT INFORMATION
  Report Type: Report from Study
  Country: NL (occurrence: NL)
  Receive Date: 20180223
  Receipt Date: 20240731
  Transmission Date: 20241017
  Serious: Yes (Hospitalization, Other)
  Sender: BOEHRINGER INGELHEIM
  Company Number: NL-AUROBINDO-AUR-APL-2017-41697

PATIENT
  Age: 36 Year
  Sex: Female

DRUGS (1)
  1. VIRAMUNE [Suspect]
     Active Substance: NEVIRAPINE
     Indication: HIV infection
     Dates: start: 2005

REACTIONS (14)
  - Vaginal discharge [Recovering/Resolving]
  - Photophobia [Recovering/Resolving]
  - Ocular hyperaemia [Recovering/Resolving]
  - Pyrexia [Recovering/Resolving]
  - Papule [Recovering/Resolving]
  - Oral blood blister [Unknown]
  - Eye pain [Recovering/Resolving]
  - Vulvovaginal pain [Recovering/Resolving]
  - Lip erosion [Recovering/Resolving]
  - Mucosal disorder [Recovering/Resolving]
  - Oral mucosa erosion [Recovering/Resolving]
  - Conjunctival hyperaemia [Recovering/Resolving]
  - Headache [Recovering/Resolving]
  - Stevens-Johnson syndrome [Unknown]
